FAERS Safety Report 24801191 (Version 1)
Quarter: 2025Q1

REPORT INFORMATION
  Report Type: Report from Study
  Country: CO (occurrence: CO)
  Receive Date: 20250102
  Receipt Date: 20250102
  Transmission Date: 20250408
  Serious: Yes (Hospitalization)
  Sender: ASTELLAS
  Company Number: CO-ASTELLAS-2024-AER-028221

PATIENT
  Age: 57 Year
  Sex: Male
  Weight: 50 kg

DRUGS (2)
  1. TACROLIMUS [Suspect]
     Active Substance: TACROLIMUS
     Indication: Product used for unknown indication
     Dosage: DAILY DOSE OF 8 MG EVERY 24 HOURS (1 CAPSULE) PROGRAF XL 5 MG
     Route: 048
  2. TACROLIMUS [Suspect]
     Active Substance: TACROLIMUS
     Indication: Product used for unknown indication
     Dosage: (1 CAPSULE): DAILY DOSE OF 8 MG EVERY 24 HOURS. PROGRAF XL 3 MG
     Route: 048

REACTIONS (5)
  - Decreased appetite [Recovering/Resolving]
  - Pyrexia [Recovering/Resolving]
  - Blood potassium decreased [Recovering/Resolving]
  - Discouragement [Recovering/Resolving]
  - General physical health deterioration [Recovering/Resolving]
